FAERS Safety Report 4771943-4 (Version None)
Quarter: 2005Q3

REPORT INFORMATION
  Report Type: 
  Country: None (occurrence: None)
  Receive Date: 20050916
  Receipt Date: 20050901
  Transmission Date: 20060218
  Serious: Yes (Other)
  Sender: FDA-Public Use
  Company Number: PHEH2005US09783

PATIENT
  Age: 9 Year
  Sex: Male

DRUGS (1)
  1. TRILEPTAL [Suspect]
     Indication: COMPLEX PARTIAL SEIZURES
     Dosage: 450 MG, BID
     Route: 048
     Dates: start: 20031201

REACTIONS (4)
  - BLINDNESS [None]
  - HYPERACUSIS [None]
  - INFREQUENT BOWEL MOVEMENTS [None]
  - SPEECH DISORDER [None]
